FAERS Safety Report 21069034 (Version 2)
Quarter: 2022Q3

REPORT INFORMATION
  Report Type: Spontaneous
  Country: IL (occurrence: IL)
  Receive Date: 20220712
  Receipt Date: 20220725
  Transmission Date: 20221027
  Serious: Yes (Life-Threatening, Hospitalization, Other)
  Sender: FDA-Public Use
  Company Number: IL-PFIZER INC-PV202200019153

PATIENT
  Age: 54 Year
  Sex: Female

DRUGS (9)
  1. PHENYTOIN SODIUM [Suspect]
     Active Substance: PHENYTOIN SODIUM
     Indication: Seizure
     Dosage: 300
  2. KEPPRA [Concomitant]
     Active Substance: LEVETIRACETAM
  3. VALPROIC ACID [Concomitant]
     Active Substance: VALPROIC ACID
  4. LEVETIRACETAM [Concomitant]
     Active Substance: LEVETIRACETAM
     Dosage: UNK
  5. OMEPRAZOLE [Concomitant]
     Active Substance: OMEPRAZOLE
  6. SLOW K [Concomitant]
     Active Substance: POTASSIUM CHLORIDE
  7. D3 VITAMIIN [Concomitant]
     Dosage: 400
  8. DEXAMETHASONE [Concomitant]
     Active Substance: DEXAMETHASONE
  9. ENSURE [Concomitant]
     Active Substance: AMINO ACIDS\DEXTROSE\ELECTROLYTES NOS\SOYBEAN OIL\VITAMINS
     Dosage: 220 ML

REACTIONS (8)
  - Stevens-Johnson syndrome [Unknown]
  - Mucosal inflammation [Unknown]
  - Pyrexia [Unknown]
  - Inflammation [Unknown]
  - Urine analysis abnormal [Unknown]
  - Paraneoplastic pemphigus [Unknown]
  - Erythema multiforme [Unknown]
  - Hepatic function abnormal [Unknown]
